FAERS Safety Report 25816042 (Version 1)
Quarter: 2025Q3

REPORT INFORMATION
  Report Type: Report from Study
  Country: CA (occurrence: CA)
  Receive Date: 20250918
  Receipt Date: 20250918
  Transmission Date: 20251020
  Serious: Yes (Other)
  Sender: ABBVIE
  Company Number: CA-ABBVIE-6459081

PATIENT
  Age: 33 Year
  Sex: Female

DRUGS (1)
  1. SKYRIZI [Suspect]
     Active Substance: RISANKIZUMAB-RZAA
     Indication: Crohn^s disease
     Route: 058

REACTIONS (9)
  - Uterine polyp [Unknown]
  - Abdominal pain [Unknown]
  - Diarrhoea [Unknown]
  - Arthralgia [Unknown]
  - Joint stiffness [Unknown]
  - Heavy menstrual bleeding [Unknown]
  - Impaired work ability [Unknown]
  - Social problem [Unknown]
  - Malaise [Unknown]

NARRATIVE: CASE EVENT DATE: 20250101
